FAERS Safety Report 8572469-2 (Version None)
Quarter: 2012Q2

REPORT INFORMATION
  Report Type: 
  Country: None (occurrence: None)
  Receive Date: 20120423
  Receipt Date: 20100824
  Transmission Date: 20120825
  Serious: Yes (Hospitalization)
  Sender: FDA-Public Use
  Company Number: PHHY2010US32598

PATIENT
  Age: 8 Year
  Sex: Female

DRUGS (4)
  1. EXJADE [Suspect]
     Indication: SICKLE CELL ANAEMIA
     Dosage: 750 MG, QD, ORAL ; 500 MG, ORAL
     Route: 048
     Dates: start: 20090501
  2. EXJADE [Suspect]
     Indication: IRON OVERLOAD
     Dosage: 750 MG, QD, ORAL ; 500 MG, ORAL
     Route: 048
     Dates: start: 20090501
  3. LASIX [Concomitant]
  4. LANOXIN [Concomitant]

REACTIONS (13)
  - HAEMATOCRIT DECREASED [None]
  - ASPARTATE AMINOTRANSFERASE INCREASED [None]
  - HAEMOGLOBIN DECREASED [None]
  - BLOOD SODIUM INCREASED [None]
  - SERUM FERRITIN INCREASED [None]
  - WHITE BLOOD CELL COUNT INCREASED [None]
  - PLATELET COUNT DECREASED [None]
  - BLOOD ALBUMIN INCREASED [None]
  - BLOOD POTASSIUM INCREASED [None]
  - ABDOMINAL PAIN [None]
  - ALANINE AMINOTRANSFERASE DECREASED [None]
  - PROTEIN TOTAL INCREASED [None]
  - DIZZINESS [None]
